FAERS Safety Report 7337565-6 (Version None)
Quarter: 2011Q1

REPORT INFORMATION
  Report Type: 
  Country: None (occurrence: None)
  Receive Date: 20110308
  Receipt Date: 20110209
  Transmission Date: 20110831
  Serious: No
  Sender: FDA-Public Use
  Company Number: US-B.I. PHARMACEUTICALS,INC./RIDGEFIELD-2010-BP-14058BP

PATIENT
  Sex: Female

DRUGS (4)
  1. XANAX [Concomitant]
     Indication: ANXIETY
  2. VASOTEC [Concomitant]
     Indication: HYPERTENSION
     Dosage: 20 MG
  3. ZANTAC 75 [Suspect]
     Indication: GASTROOESOPHAGEAL REFLUX DISEASE
  4. ZANTAC 75 [Suspect]
     Indication: HELICOBACTER INFECTION
     Route: 048
     Dates: start: 20100101

REACTIONS (3)
  - FEELING ABNORMAL [None]
  - MALAISE [None]
  - PYREXIA [None]
